FAERS Safety Report 8209197-9 (Version None)
Quarter: 2012Q1

REPORT INFORMATION
  Report Type: 
  Country: None (occurrence: None)
  Receive Date: 20120314
  Receipt Date: 20120224
  Transmission Date: 20120608
  Serious: No
  Sender: FDA-Public Use
  Company Number: US-BAYER-2012-021260

PATIENT
  Age: 19 Year
  Sex: Female

DRUGS (4)
  1. YASMIN [Suspect]
     Indication: MENORRHAGIA
  2. DROSPIRENONE AND ETHINYL ESTRADIOL [Suspect]
     Indication: MENORRHAGIA
  3. YASMIN [Suspect]
     Indication: MENSTRUATION IRREGULAR
  4. DROSPIRENONE AND ETHINYL ESTRADIOL [Suspect]
     Indication: MENSTRUATION IRREGULAR
     Dosage: UNK

REACTIONS (9)
  - NAUSEA [None]
  - WEIGHT DECREASED [None]
  - PYREXIA [None]
  - THINKING ABNORMAL [None]
  - TREMOR [None]
  - VOMITING [None]
  - INSOMNIA [None]
  - MIGRAINE [None]
  - DECREASED APPETITE [None]
